FAERS Safety Report 9643679 (Version 1)
Quarter: 2013Q4

REPORT INFORMATION
  Report Type: Spontaneous
  Country: FR (occurrence: None)
  Receive Date: 20131022
  Receipt Date: 20131022
  Transmission Date: 20140711
  Serious: Yes (Hospitalization)
  Sender: FDA-Public Use
  Company Number: 1914158

PATIENT
  Age: 76 Year
  Sex: Female

DRUGS (2)
  1. CARBOPLATIN [Suspect]
     Indication: LUNG ADENOCARCINOMA
     Dates: start: 20110808
  2. ALIMTA [Suspect]
     Indication: LUNG ADENOCARCINOMA
     Dates: start: 20110808

REACTIONS (11)
  - Aplasia [None]
  - Renal tubular disorder [None]
  - Paraesthesia [None]
  - Hypomagnesaemia [None]
  - Hypocalcaemia [None]
  - Hypokalaemia [None]
  - Febrile bone marrow aplasia [None]
  - Thrombocytopenia [None]
  - Anaemia [None]
  - Leukopenia [None]
  - Neutropenia [None]
